FAERS Safety Report 5311743-X (Version None)
Quarter: 2007Q2

REPORT INFORMATION
  Report Type: 
  Country: None (occurrence: None)
  Receive Date: 20070430
  Receipt Date: 20070418
  Transmission Date: 20071010
  Serious: Yes (Other)
  Sender: FDA-Public Use
  Company Number: US-ROCHE-493525

PATIENT
  Age: 27 Month
  Sex: Female
  Weight: 13.6 kg

DRUGS (2)
  1. CELLCEPT [Suspect]
     Route: 048
     Dates: start: 20060914
  2. ENALAPRIL [Concomitant]

REACTIONS (2)
  - EAR INFECTION STAPHYLOCOCCAL [None]
  - NEPHROTIC SYNDROME [None]
